FAERS Safety Report 4543922-3 (Version None)
Quarter: 2005Q1

REPORT INFORMATION
  Report Type: 
  Country: None (occurrence: None)
  Receive Date: 20050103
  Receipt Date: 20040405
  Transmission Date: 20050727
  Serious: Yes (Hospitalization)
  Sender: FDA-Public Use
  Company Number: PHFR2004GB00738

PATIENT
  Age: 36 Year
  Sex: Male

DRUGS (9)
  1. CLOZARIL [Suspect]
     Indication: SCHIZOPHRENIA
     Dosage: SEE IMAGE
     Route: 048
     Dates: start: 20031016
  2. CLOZARIL [Suspect]
     Indication: SCHIZOPHRENIA
     Dosage: SEE IMAGE
     Route: 048
     Dates: start: 20040121
  3. CLOZARIL [Suspect]
     Indication: SCHIZOPHRENIA
     Dosage: SEE IMAGE
     Route: 048
     Dates: start: 20040127
  4. LORAZEPAM [Suspect]
     Dosage: SEE IMAGE
     Route: 048
     Dates: start: 20031110
  5. LORAZEPAM [Suspect]
     Dosage: SEE IMAGE
     Route: 048
     Dates: start: 20040121
  6. TEMAZEPAM [Suspect]
     Dosage: OVERDOSE
     Dates: start: 20040121
  7. DIAZEPAM [Suspect]
     Dosage: OVERDOSE
     Dates: start: 20040121
  8. CITALOPRAM HYDROBROMIDE [Suspect]
     Indication: DEPRESSION
     Dosage: SEE IMAGE
     Route: 048
     Dates: start: 20031117
  9. GAVISCON [Concomitant]

REACTIONS (5)
  - CIRCULATORY COLLAPSE [None]
  - CONFUSIONAL STATE [None]
  - INTENTIONAL MISUSE [None]
  - SUICIDE ATTEMPT [None]
  - TREATMENT NONCOMPLIANCE [None]
